FAERS Safety Report 8374800-X (Version None)
Quarter: 2012Q2

REPORT INFORMATION
  Report Type: 
  Country: None (occurrence: None)
  Receive Date: 20120521
  Receipt Date: 20120509
  Transmission Date: 20120825
  Serious: Yes (Other)
  Sender: FDA-Public Use
  Company Number: CA-JNJFOC-20120509768

PATIENT
  Age: 65 Year
  Sex: Female
  Weight: 71.22 kg

DRUGS (2)
  1. TYLENOL (GELTAB) [Suspect]
     Indication: PAIN
     Dosage: 1 OR 2, 1 TIME
     Route: 048
  2. TYLENOL (GELTAB) [Suspect]
     Route: 048

REACTIONS (1)
  - ANAPHYLACTIC SHOCK [None]
